FAERS Safety Report 5835582-6 (Version None)
Quarter: 2008Q3

REPORT INFORMATION
  Report Type: 
  Country: None (occurrence: None)
  Receive Date: 20080806
  Receipt Date: 20080730
  Transmission Date: 20090109
  Serious: Yes (Hospitalization)
  Sender: FDA-Public Use
  Company Number: FR-ASTRAZENECA-2008CG01153

PATIENT
  Age: 18990 Day
  Sex: Female

DRUGS (3)
  1. ZOMIG [Suspect]
     Indication: MIGRAINE
     Route: 048
  2. EFFEXOR [Suspect]
     Indication: MIGRAINE
     Route: 048
     Dates: start: 20080624, end: 20080627
  3. EFFEXOR [Suspect]
     Route: 048
     Dates: start: 20080628, end: 20080629

REACTIONS (2)
  - AGITATION [None]
  - DELUSION [None]
